FAERS Safety Report 4575428-X (Version None)
Quarter: 2005Q1

REPORT INFORMATION
  Report Type: 
  Country: None (occurrence: None)
  Receive Date: 20050131
  Receipt Date: 20050131
  Transmission Date: 20050727
  Serious: Yes (Hospitalization)
  Sender: FDA-Public Use
  Company Number: None

PATIENT
  Sex: Female
  Weight: 43.4 kg

DRUGS (8)
  1. ONTAK [Suspect]
     Indication: GRAFT VERSUS HOST DISEASE
     Dosage: SEE IMAGE
     Route: 042
     Dates: start: 20041201, end: 20041205
  2. ONTAK [Suspect]
     Indication: GRAFT VERSUS HOST DISEASE
     Dosage: SEE IMAGE
     Route: 042
     Dates: start: 20041208, end: 20050127
  3. ONTAK [Suspect]
  4. TACROLIMUS [Concomitant]
  5. ACYCLOVIR [Concomitant]
  6. PROTONIX [Concomitant]
  7. SPORANOX [Concomitant]
  8. PENICILLIN VK [Concomitant]

REACTIONS (3)
  - DIARRHOEA [None]
  - NAUSEA [None]
  - VOMITING [None]
